FAERS Safety Report 10431097 (Version 5)
Quarter: 2015Q4

REPORT INFORMATION
  Report Type: Spontaneous
  Country: US (occurrence: None)
  Receive Date: 20140902
  Receipt Date: 20151123
  Transmission Date: 20160304
  Serious: Yes (Life-Threatening, Hospitalization, Other)
  Sender: FDA-Public Use
  Company Number: ADR-2014-01554

PATIENT
  Age: 56 Year
  Sex: Male

DRUGS (2)
  1. MORPHINE INTRATHECAL [Suspect]
     Active Substance: MORPHINE
  2. BACLOFEN INTRATHECAL [Suspect]
     Active Substance: BACLOFEN
     Indication: MUSCLE SPASTICITY

REACTIONS (9)
  - Hip fracture [None]
  - Abdominal X-ray [None]
  - Accidental overdose [None]
  - Memory impairment [None]
  - Muscle tightness [None]
  - Arthritis [None]
  - Performance status decreased [None]
  - Loss of consciousness [None]
  - Joint contracture [None]
